FAERS Safety Report 16628410 (Version 4)
Quarter: 2020Q1

REPORT INFORMATION
  Report Type: Report from Study
  Country: NL (occurrence: NL)
  Receive Date: 20190724
  Receipt Date: 20200112
  Transmission Date: 20200409
  Serious: Yes (Other)
  Sender: FDA-Public Use
  Company Number: NL-BEH-2019104782

PATIENT
  Age: 63 Year
  Sex: Male

DRUGS (6)
  1. ZEMAIRA [Suspect]
     Active Substance: .ALPHA.1-PROTEINASE INHIBITOR HUMAN
     Dosage: 20 GRAM, TOT
     Route: 042
     Dates: start: 20190423, end: 20190423
  2. ZEMAIRA [Suspect]
     Active Substance: .ALPHA.1-PROTEINASE INHIBITOR HUMAN
     Dosage: 20 GRAM, TOT
     Route: 042
     Dates: start: 201906, end: 201906
  3. ZEMAIRA [Suspect]
     Active Substance: .ALPHA.1-PROTEINASE INHIBITOR HUMAN
     Dosage: 20 GRAM, TOT
     Route: 042
     Dates: start: 20190315, end: 20190315
  4. ZEMAIRA [Suspect]
     Active Substance: .ALPHA.1-PROTEINASE INHIBITOR HUMAN
     Indication: ALPHA-1 ANTI-TRYPSIN DEFICIENCY
     Dosage: 240 GRAM, QMT
     Route: 042
     Dates: start: 201905, end: 201907
  5. ZEMAIRA [Suspect]
     Active Substance: .ALPHA.1-PROTEINASE INHIBITOR HUMAN
     Indication: EMPHYSEMA
     Dosage: 20 GRAM, TOT
     Route: 042
     Dates: start: 201905, end: 201905
  6. ZEMAIRA [Suspect]
     Active Substance: .ALPHA.1-PROTEINASE INHIBITOR HUMAN
     Dosage: 20 GRAM, TOT
     Route: 042
     Dates: start: 201907, end: 201907

REACTIONS (7)
  - Influenza [Unknown]
  - Pyrexia [Recovering/Resolving]
  - Arthralgia [Recovering/Resolving]
  - Myalgia [Recovering/Resolving]
  - Influenza like illness [Unknown]
  - Loss of personal independence in daily activities [Recovering/Resolving]
  - Polymyalgia rheumatica [Recovering/Resolving]

NARRATIVE: CASE EVENT DATE: 2019
